FAERS Safety Report 5051697-7 (Version None)
Quarter: 2006Q3

REPORT INFORMATION
  Report Type: 
  Country: None (occurrence: None)
  Receive Date: 20060712
  Receipt Date: 20060712
  Transmission Date: 20061208
  Serious: No
  Sender: FDA-Public Use
  Company Number: None

PATIENT
  Age: 57 Year
  Sex: Male

DRUGS (1)
  1. IOHEXOL (CONTRAST DYE) [Suspect]
     Indication: ANGIOGRAM
     Dosage: 50 ML (X1)
     Dates: start: 20060502

REACTIONS (3)
  - BLOOD PRESSURE DECREASED [None]
  - HYPERSENSITIVITY [None]
  - SIMILAR REACTION ON PREVIOUS EXPOSURE TO DRUG [None]
